FAERS Safety Report 10615626 (Version 1)
Quarter: 2014Q4

REPORT INFORMATION
  Report Type: Other
  Country: GB (occurrence: GB)
  Receive Date: 20141201
  Receipt Date: 20141201
  Transmission Date: 20150529
  Serious: Yes (Death, Hospitalization, Other)
  Sender: FDA-Public Use
  Company Number: GB-TAKEDA-2014JNJ006240

PATIENT

DRUGS (2)
  1. VELCADE [Suspect]
     Active Substance: BORTEZOMIB
     Indication: PLASMA CELL MYELOMA
     Dosage: 1.2 MG/M2, Q3WEEKS
     Route: 058
     Dates: start: 20130611, end: 20130920
  2. DEXAMETHASONE. [Suspect]
     Active Substance: DEXAMETHASONE
     Indication: PLASMA CELL MYELOMA
     Dosage: 20 MG, Q3WEEKS
     Route: 048
     Dates: start: 20130611, end: 20130920

REACTIONS (4)
  - Death [Fatal]
  - Humerus fracture [Unknown]
  - Liver function test abnormal [Unknown]
  - Fall [Unknown]

NARRATIVE: CASE EVENT DATE: 201307
